FAERS Safety Report 13005703 (Version 1)
Quarter: 2016Q4

REPORT INFORMATION
  Report Type: Spontaneous
  Country: US (occurrence: US)
  Receive Date: 20161207
  Receipt Date: 20161207
  Transmission Date: 20170207
  Serious: Yes (Hospitalization, Other)
  Sender: FDA-Public Use
  Company Number: PHEH2016US031481

PATIENT
  Age: 51 Year
  Sex: Female

DRUGS (1)
  1. GILENYA [Suspect]
     Active Substance: FINGOLIMOD HYDROCHLORIDE
     Indication: RELAPSING-REMITTING MULTIPLE SCLEROSIS
     Dosage: 0.5 MG, QD
     Route: 048
     Dates: start: 20150715, end: 20161127

REACTIONS (5)
  - Metastases to meninges [Unknown]
  - Lymphocyte count decreased [Unknown]
  - Intracranial pressure increased [Unknown]
  - Meningitis cryptococcal [Not Recovered/Not Resolved]
  - Headache [Unknown]
